FAERS Safety Report 14206105 (Version 3)
Quarter: 2018Q1

REPORT INFORMATION
  Report Type: Spontaneous
  Country: DZ (occurrence: DZ)
  Receive Date: 20171120
  Receipt Date: 20180319
  Transmission Date: 20180508
  Serious: Yes (Death, Disabling)
  Sender: FDA-Public Use
  Company Number: DZ-CELGENEUS-DZA-20171105914

PATIENT
  Age: 57 Year
  Sex: Female

DRUGS (4)
  1. REVLIMID [Suspect]
     Active Substance: LENALIDOMIDE
     Route: 048
  2. EPREX [Concomitant]
     Active Substance: ERYTHROPOIETIN
     Indication: PRODUCT USED FOR UNKNOWN INDICATION
     Route: 065
  3. REVLIMID [Suspect]
     Active Substance: LENALIDOMIDE
     Indication: PLASMA CELL MYELOMA
     Route: 048
     Dates: start: 20170917, end: 20170924
  4. REVLIMID [Suspect]
     Active Substance: LENALIDOMIDE
     Dosage: 10-15 MG
     Route: 048
     Dates: start: 20171002

REACTIONS (3)
  - Anaemia [Unknown]
  - Plasma cell myeloma [Fatal]
  - Thrombocytopenia [Unknown]

NARRATIVE: CASE EVENT DATE: 20170925
